FAERS Safety Report 20533133 (Version 1)
Quarter: 2022Q1

REPORT INFORMATION
  Report Type: Report from Study
  Country: US (occurrence: US)
  Receive Date: 20220301
  Receipt Date: 20220301
  Transmission Date: 20220423
  Serious: Yes (Other)
  Sender: FDA-Public Use
  Company Number: US-ABBVIE-22K-163-4296717-00

PATIENT
  Sex: Male

DRUGS (1)
  1. VENCLEXTA [Suspect]
     Active Substance: VENETOCLAX
     Indication: Product used for unknown indication
     Route: 048
     Dates: start: 20211006

REACTIONS (5)
  - Transurethral prostatectomy [Unknown]
  - Post procedural haemorrhage [Unknown]
  - Thrombosis [Unknown]
  - Constipation [Unknown]
  - Feeling abnormal [Unknown]
